FAERS Safety Report 12496577 (Version 1)
Quarter: 2016Q2

REPORT INFORMATION
  Report Type: Spontaneous
  Country: US (occurrence: US)
  Receive Date: 20160624
  Receipt Date: 20160624
  Transmission Date: 20160815
  Serious: No
  Sender: FDA-Public Use
  Company Number: US-BIOGEN-2016BI00253310

PATIENT
  Sex: Female

DRUGS (1)
  1. TECFIDERA [Suspect]
     Active Substance: DIMETHYL FUMARATE
     Indication: MULTIPLE SCLEROSIS
     Route: 065
     Dates: start: 20140331, end: 20150228

REACTIONS (4)
  - Pharyngitis streptococcal [Recovered/Resolved]
  - Herpes zoster [Recovered/Resolved]
  - Flushing [Recovered/Resolved]
  - Influenza [Recovered/Resolved]
